FAERS Safety Report 8457728-6 (Version None)
Quarter: 2012Q2

REPORT INFORMATION
  Report Type: 
  Country: None (occurrence: None)
  Receive Date: 20120618
  Receipt Date: 20120618
  Transmission Date: 20120825
  Serious: Yes (Life-Threatening, Other)
  Sender: FDA-Public Use
  Company Number: None

PATIENT
  Age: 53 Year
  Sex: Female
  Weight: 86.1834 kg

DRUGS (1)
  1. PHENYTOIN SODIUM [Suspect]
     Indication: CONVULSION
     Dosage: 3 CAPS TWICE A DAY PO
     Route: 048
     Dates: start: 19850101, end: 20120616

REACTIONS (4)
  - ERYTHEMA [None]
  - BLISTER [None]
  - PAIN [None]
  - HYPOAESTHESIA [None]
